FAERS Safety Report 13163752 (Version 3)
Quarter: 2017Q1

REPORT INFORMATION
  Report Type: Spontaneous
  Country: US (occurrence: US)
  Receive Date: 20170130
  Receipt Date: 20170303
  Transmission Date: 20170428
  Serious: Yes (Hospitalization, Other)
  Sender: FDA-Public Use
  Company Number: US-ALLERGAN-1703179US

PATIENT
  Age: 83 Year
  Sex: Male

DRUGS (3)
  1. NAMENDA XR [Suspect]
     Active Substance: MEMANTINE HYDROCHLORIDE
     Indication: AMNESIA
     Dosage: 7 MG, QD
     Route: 048
     Dates: start: 2016, end: 2016
  2. NAMENDA XR [Suspect]
     Active Substance: MEMANTINE HYDROCHLORIDE
     Dosage: 28 MG, QD
     Route: 048
     Dates: start: 2016, end: 2016
  3. NAMENDA XR [Suspect]
     Active Substance: MEMANTINE HYDROCHLORIDE
     Dosage: UNK UNK, QD
     Route: 048
     Dates: start: 2016, end: 2016

REACTIONS (3)
  - Cardiac failure congestive [Not Recovered/Not Resolved]
  - Myocardial infarction [Recovered/Resolved]
  - Cardiac contusion [Not Recovered/Not Resolved]

NARRATIVE: CASE EVENT DATE: 201610
